FAERS Safety Report 21224564 (Version 1)
Quarter: 2022Q3

REPORT INFORMATION
  Report Type: Spontaneous
  Country: US (occurrence: US)
  Receive Date: 20220817
  Receipt Date: 20220817
  Transmission Date: 20221027
  Serious: No
  Sender: FDA-Public Use
  Company Number: US-OTSUKA-2022_030101

PATIENT
  Sex: Female
  Weight: 56.7 kg

DRUGS (8)
  1. ARIPIPRAZOLE [Suspect]
     Active Substance: ARIPIPRAZOLE
     Indication: Depression
     Dosage: 10 MG
     Route: 065
  2. ARIPIPRAZOLE [Suspect]
     Active Substance: ARIPIPRAZOLE
     Dosage: 15 MG
     Route: 065
  3. ARIPIPRAZOLE [Suspect]
     Active Substance: ARIPIPRAZOLE
     Dosage: 20 MG, QD
     Route: 065
  4. CYMBALTA [Concomitant]
     Active Substance: DULOXETINE HYDROCHLORIDE
     Indication: Product used for unknown indication
     Dosage: UNK
     Route: 065
  5. CELEBREX [Concomitant]
     Active Substance: CELECOXIB
     Indication: Product used for unknown indication
     Dosage: UNK
     Route: 065
  6. TRAMADOL [Concomitant]
     Active Substance: TRAMADOL
     Indication: Product used for unknown indication
     Dosage: 50 MG, BID
     Route: 065
  7. LOSARTAN [Concomitant]
     Active Substance: LOSARTAN
     Indication: Product used for unknown indication
     Dosage: UNK
     Route: 065
  8. LUNESTA [Concomitant]
     Active Substance: ESZOPICLONE
     Indication: Sleep disorder
     Dosage: UNK
     Route: 065

REACTIONS (2)
  - COVID-19 [Unknown]
  - Drug ineffective for unapproved indication [Unknown]
